FAERS Safety Report 5177714-1 (Version None)
Quarter: 2006Q4

REPORT INFORMATION
  Report Type: 
  Country: None (occurrence: None)
  Receive Date: 20061207
  Receipt Date: 20061126
  Transmission Date: 20070319
  Serious: Yes (Other)
  Sender: FDA-Public Use
  Company Number: 2006145513

PATIENT
  Age: 47 Year
  Sex: Female
  Weight: 58.0604 kg

DRUGS (3)
  1. DEPO-PROVERA [Suspect]
     Indication: UTERINE LEIOMYOMA
     Dosage: (FIRST INJECTION/EVERY 3 MONTHS)
     Dates: start: 20060101, end: 20060101
  2. EFFEXOR [Concomitant]
  3. VICODIN [Concomitant]

REACTIONS (4)
  - HAIR GROWTH ABNORMAL [None]
  - NASOPHARYNGITIS [None]
  - PLEURAL EFFUSION [None]
  - PNEUMONIA [None]
